FAERS Safety Report 6455106-2 (Version None)
Quarter: 2009Q4

REPORT INFORMATION
  Report Type: 
  Country: None (occurrence: None)
  Receive Date: 20091124
  Receipt Date: 20090320
  Transmission Date: 20100525
  Serious: No
  Sender: FDA-Public Use
  Company Number: US-AMGEN-KDL339611

PATIENT
  Sex: Female

DRUGS (7)
  1. ENBREL [Suspect]
     Indication: RHEUMATOID ARTHRITIS
     Route: 058
     Dates: start: 20090217
  2. METHOTREXATE [Suspect]
     Dates: start: 20090106
  3. PLAQUENIL [Concomitant]
     Dates: start: 20090106
  4. NAPROSYN [Concomitant]
     Dates: start: 20080101
  5. LEXAPRO [Concomitant]
     Dates: start: 20080101
  6. ALLEGRA [Concomitant]
     Dates: start: 20080101
  7. NEXIUM [Concomitant]

REACTIONS (1)
  - FATIGUE [None]
